FAERS Safety Report 9139877 (Version 1)
Quarter: 2013Q1

REPORT INFORMATION
  Report Type: Spontaneous
  Country: US (occurrence: US)
  Receive Date: 20130305
  Receipt Date: 20130305
  Transmission Date: 20140127
  Serious: No
  Sender: FDA-Public Use
  Company Number: US-ENDO PHARMACEUTICALS INC.-SPLN20120160

PATIENT
  Sex: Female
  Weight: 34.6 kg

DRUGS (2)
  1. SUPPRELIN LA [Suspect]
     Indication: PRODUCT USED FOR UNKNOWN INDICATION
     Route: 058
     Dates: start: 2010, end: 2012
  2. SUPPRELIN LA [Suspect]
     Route: 058
     Dates: start: 2011, end: 2012

REACTIONS (2)
  - Hair growth abnormal [Unknown]
  - Breast enlargement [Unknown]
